FAERS Safety Report 18540170 (Version 1)
Quarter: 2020Q4

REPORT INFORMATION
  Report Type: Spontaneous
  Country: US (occurrence: US)
  Receive Date: 20201124
  Receipt Date: 20201124
  Transmission Date: 20210114
  Serious: No
  Sender: FDA-Public Use
  Company Number: NVSC2020US304660

PATIENT
  Sex: Female

DRUGS (1)
  1. XIIDRA [Suspect]
     Active Substance: LIFITEGRAST
     Indication: EYE DISORDER
     Dosage: 5 %, BID
     Route: 047
     Dates: start: 20201110

REACTIONS (7)
  - Muscle tightness [Unknown]
  - Anxiety [Unknown]
  - Swollen tongue [Unknown]
  - Palpitations [Unknown]
  - Muscle spasms [Unknown]
  - Hypersensitivity [Unknown]
  - Chest discomfort [Unknown]
